FAERS Safety Report 8427045-9 (Version None)
Quarter: 2012Q2

REPORT INFORMATION
  Report Type: 
  Country: None (occurrence: None)
  Receive Date: 20120611
  Receipt Date: 20120516
  Transmission Date: 20120825
  Serious: Yes (Other)
  Sender: FDA-Public Use
  Company Number: ES-US-EMD SERONO, INC.-7128559

PATIENT
  Sex: Female
  Weight: 12 kg

DRUGS (3)
  1. SAIZEN [Suspect]
     Route: 058
     Dates: start: 20120131, end: 20120321
  2. SAIZEN [Suspect]
     Route: 058
     Dates: start: 20120321, end: 20120508
  3. SAIZEN [Suspect]
     Indication: SMALL FOR DATES BABY
     Route: 058
     Dates: start: 20100303, end: 20120130

REACTIONS (1)
  - INSULIN-LIKE GROWTH FACTOR INCREASED [None]
